FAERS Safety Report 19399530 (Version 1)
Quarter: 2021Q2

REPORT INFORMATION
  Report Type: Spontaneous
  Country: AU (occurrence: AU)
  Receive Date: 20210610
  Receipt Date: 20210610
  Transmission Date: 20210717
  Serious: Yes (Death, Other)
  Sender: FDA-Public Use
  Company Number: AU-BAXTER-2021BAX014844

PATIENT
  Age: 57 Year
  Sex: Male

DRUGS (28)
  1. ETOPOSIDE. [Suspect]
     Active Substance: ETOPOSIDE
     Indication: HAEMATOPOIETIC STEM CELL MOBILISATION
     Dosage: 3 CYCLES OF RICE CHEMOTHERAPY
     Route: 065
     Dates: start: 2019
  2. CARBOPLATIN. [Suspect]
     Active Substance: CARBOPLATIN
     Indication: HAEMATOPOIETIC STEM CELL MOBILISATION
     Dosage: 3 CYCLES OF RICE CHEMOTHERAPY
     Route: 065
     Dates: start: 2019
  3. ALLOPURINOL. [Concomitant]
     Active Substance: ALLOPURINOL
     Indication: PRODUCT USED FOR UNKNOWN INDICATION
     Route: 065
  4. ENDOXAN CYCLOPHOSPHAMIDE 1G (AS MONOHYDRATE) POWDER FOR INJECTION VIAL [Suspect]
     Active Substance: CYCLOPHOSPHAMIDE
     Indication: DIFFUSE LARGE B-CELL LYMPHOMA REFRACTORY
     Dosage: 3 CYCLES OF R?DA?EPOCH CHEMOTHERAPY
     Route: 065
     Dates: start: 2020
  5. RITUXIMAB. [Suspect]
     Active Substance: RITUXIMAB
     Indication: DIFFUSE LARGE B-CELL LYMPHOMA STAGE II
     Dosage: 6 CYCLES OF R?CHOP REGIMEN, 21 DAYS EACH CYCLE, PLUS 2R
     Route: 065
     Dates: start: 201509, end: 201603
  6. RITUXIMAB. [Suspect]
     Active Substance: RITUXIMAB
     Indication: DIFFUSE LARGE B-CELL LYMPHOMA REFRACTORY
     Dosage: 3 CYCLES OF R?DA?EPOCH CHEMOTHERAPY
     Route: 065
     Dates: start: 2020
  7. VINCRISTINE SULFATE. [Suspect]
     Active Substance: VINCRISTINE SULFATE
     Indication: DIFFUSE LARGE B-CELL LYMPHOMA REFRACTORY
     Dosage: 3 CYCLES OF R?DA?EPOCH CHEMOTHERAPY
     Route: 065
     Dates: start: 2020
  8. PREDNISONE. [Suspect]
     Active Substance: PREDNISONE
     Indication: DIFFUSE LARGE B-CELL LYMPHOMA REFRACTORY
     Dosage: 3 CYCLES OF R?DA?EPOCH CHEMOTHERAPY
     Route: 065
     Dates: start: 2020
  9. DOXIL [Suspect]
     Active Substance: DOXORUBICIN HYDROCHLORIDE
     Dosage: HYPERCVAD CYCLE B
     Route: 065
     Dates: start: 2020
  10. RITUXIMAB. [Suspect]
     Active Substance: RITUXIMAB
     Indication: DIFFUSE LARGE B-CELL LYMPHOMA RECURRENT
     Dosage: 2 CYCLES OF R?DHAP CHEMOTHERAPY
     Route: 065
     Dates: start: 2019
  11. DOXORUBICIN HYDROCHLORIDE. [Suspect]
     Active Substance: DOXORUBICIN HYDROCHLORIDE
     Indication: DIFFUSE LARGE B-CELL LYMPHOMA STAGE II
     Dosage: 6 CYCLES OF R2?CHOP REGIMEN FOR 21 DAYS EACH CYCLE
     Route: 065
     Dates: start: 201509, end: 201603
  12. VINCRISTINE SULFATE. [Suspect]
     Active Substance: VINCRISTINE SULFATE
     Dosage: HYPERCVAD CYCLE B
     Route: 065
     Dates: start: 2020
  13. CYTARABINE. [Suspect]
     Active Substance: CYTARABINE
     Indication: DIFFUSE LARGE B-CELL LYMPHOMA RECURRENT
     Dosage: 2 CYCLES OF R?DHAP CHEMOTHERAPY
     Route: 065
     Dates: start: 2019
  14. CISPLATIN. [Suspect]
     Active Substance: CISPLATIN
     Indication: DIFFUSE LARGE B-CELL LYMPHOMA RECURRENT
     Dosage: 2 CYCLES OF R?DHAP CHEMOTHERAPY
     Route: 065
     Dates: start: 2019
  15. ETOPOSIDE. [Suspect]
     Active Substance: ETOPOSIDE
     Indication: DIFFUSE LARGE B-CELL LYMPHOMA REFRACTORY
     Dosage: 3 CYCLES OF R?DA?EPOCH CHEMOTHERAPY
     Route: 065
     Dates: start: 2020
  16. COLCHICINE. [Concomitant]
     Active Substance: COLCHICINE
     Indication: PRODUCT USED FOR UNKNOWN INDICATION
     Route: 065
  17. HOLOXAN IFOSFAMIDE 2G POWDER FOR INJECTION VIAL (OF) [Suspect]
     Active Substance: IFOSFAMIDE
     Indication: HAEMATOPOIETIC STEM CELL MOBILISATION
     Dosage: 3 CYCLES OF RICE CHEMOTHERAPY
     Route: 065
     Dates: start: 2019
  18. SERETIDE [Concomitant]
     Active Substance: FLUTICASONE PROPIONATE\SALMETEROL XINAFOATE
     Indication: PRODUCT USED FOR UNKNOWN INDICATION
     Dosage: 250/25
     Route: 065
  19. DEXAMETHASONE. [Suspect]
     Active Substance: DEXAMETHASONE
     Indication: DIFFUSE LARGE B-CELL LYMPHOMA REFRACTORY
     Dosage: HYPERCVAD CYCLE B
     Route: 065
     Dates: start: 2020
  20. DOXIL [Suspect]
     Active Substance: DOXORUBICIN HYDROCHLORIDE
     Indication: DIFFUSE LARGE B-CELL LYMPHOMA REFRACTORY
     Dosage: 3 CYCLES OF R?DA?EPOCH CHEMOTHERAPY
     Route: 065
     Dates: start: 2020
  21. DEXAMETHASONE. [Suspect]
     Active Substance: DEXAMETHASONE
     Indication: DIFFUSE LARGE B-CELL LYMPHOMA RECURRENT
     Dosage: 2 CYCLES OF R?DHAP CHEMOTHERAPY
     Route: 065
     Dates: start: 2019
  22. MIRTAZAPINE. [Concomitant]
     Active Substance: MIRTAZAPINE
     Indication: PRODUCT USED FOR UNKNOWN INDICATION
     Route: 065
  23. PREDNISONE. [Suspect]
     Active Substance: PREDNISONE
     Indication: DIFFUSE LARGE B-CELL LYMPHOMA STAGE II
     Dosage: 6 CYCLES OF R2?CHOP REGIMEN FOR 21 DAYS EACH CYCLE
     Route: 065
     Dates: start: 201509, end: 201603
  24. ESOMEPRAZOLE. [Concomitant]
     Active Substance: ESOMEPRAZOLE MAGNESIUM
     Indication: PRODUCT USED FOR UNKNOWN INDICATION
     Route: 065
  25. ENDOXAN CYCLOPHOSPHAMIDE 1G (AS MONOHYDRATE) POWDER FOR INJECTION VIAL [Suspect]
     Active Substance: CYCLOPHOSPHAMIDE
     Indication: DIFFUSE LARGE B-CELL LYMPHOMA STAGE II
     Dosage: 6 CYCLES OF R2?CHOP REGIMEN FOR 21 DAYS EACH CYCLE
     Route: 065
     Dates: start: 201509, end: 201603
  26. ENDOXAN CYCLOPHOSPHAMIDE 1G (AS MONOHYDRATE) POWDER FOR INJECTION VIAL [Suspect]
     Active Substance: CYCLOPHOSPHAMIDE
     Dosage: HYPERCVAD CYCLE B
     Route: 065
     Dates: start: 2020
  27. RITUXIMAB. [Suspect]
     Active Substance: RITUXIMAB
     Indication: HAEMATOPOIETIC STEM CELL MOBILISATION
     Dosage: 3 CYCLES OF RICE CHEMOTHERAPY
     Route: 065
     Dates: start: 2019
  28. VINCRISTINE SULFATE. [Suspect]
     Active Substance: VINCRISTINE SULFATE
     Indication: DIFFUSE LARGE B-CELL LYMPHOMA STAGE II
     Dosage: 6 CYCLES OF R?CHOP REGIMEN FOR 21 DAYS
     Route: 065
     Dates: start: 201509, end: 201603

REACTIONS (8)
  - Death [Fatal]
  - Metastases to lung [Unknown]
  - Metastases to spleen [Unknown]
  - Central nervous system lymphoma [Unknown]
  - Headache [Unknown]
  - Diffuse large B-cell lymphoma recurrent [Unknown]
  - Diffuse large B-cell lymphoma refractory [Unknown]
  - Lymphadenopathy [Unknown]

NARRATIVE: CASE EVENT DATE: 2019
